FAERS Safety Report 21674869 (Version 1)
Quarter: 2022Q4

REPORT INFORMATION
  Report Type: Spontaneous
  Country: BR (occurrence: BR)
  Receive Date: 20221202
  Receipt Date: 20221202
  Transmission Date: 20230113
  Serious: Yes (Other)
  Sender: FDA-Public Use
  Company Number: BR-002147023-NVSC2022BR265387

PATIENT

DRUGS (1)
  1. COSENTYX [Suspect]
     Active Substance: SECUKINUMAB
     Indication: Psoriasis
     Dosage: UNK
     Route: 065
     Dates: start: 202112

REACTIONS (5)
  - Eye infection toxoplasmal [Unknown]
  - Eye disorder [Recovering/Resolving]
  - Visual impairment [Unknown]
  - Decreased immune responsiveness [Unknown]
  - Toxoplasmosis [Recovering/Resolving]

NARRATIVE: CASE EVENT DATE: 20220601
